FAERS Safety Report 24888796 (Version 1)
Quarter: 2025Q1

REPORT INFORMATION
  Report Type: Spontaneous
  Country: US (occurrence: None)
  Receive Date: 20250124
  Receipt Date: 20250124
  Transmission Date: 20250409
  Serious: Yes (Hospitalization)
  Sender: FDA-CTU
  Company Number: None

PATIENT
  Sex: Female

DRUGS (2)
  1. MYCOPHENOLATE MOFETIL [Suspect]
     Active Substance: MYCOPHENOLATE MOFETIL
     Indication: Renal transplant
     Dosage: 500MG BID PO?
     Route: 048
     Dates: start: 202204
  2. GENGRAF [Concomitant]
     Active Substance: CYCLOSPORINE

REACTIONS (7)
  - Headache [None]
  - Fatigue [None]
  - Somnolence [None]
  - Blood creatinine increased [None]
  - Dehydration [None]
  - Nausea [None]
  - Vomiting [None]
